FAERS Safety Report 6624072-9 (Version None)
Quarter: 2010Q1

REPORT INFORMATION
  Report Type: 
  Country: None (occurrence: None)
  Receive Date: 20100310
  Receipt Date: 20100301
  Transmission Date: 20100710
  Serious: Yes (Death)
  Sender: FDA-Public Use
  Company Number: PL-ROCHE-685738

PATIENT
  Age: 49 Year
  Sex: Female
  Weight: 80 kg

DRUGS (3)
  1. XELODA [Suspect]
     Dosage: FREQUENCY REPORTED: TWO WEEKS AND ONE WEEK INTERVAL
     Route: 065
  2. LAPATINIB [Concomitant]
  3. PREDUCTAL [Concomitant]
     Dosage: DRUG NAME REPORTED: PREDUCTAL MR

REACTIONS (3)
  - CHEST PAIN [None]
  - FALL [None]
  - LOSS OF CONSCIOUSNESS [None]
